FAERS Safety Report 7348519-8 (Version None)
Quarter: 2011Q1

REPORT INFORMATION
  Report Type: 
  Country: None (occurrence: None)
  Receive Date: 20110314
  Receipt Date: 20110307
  Transmission Date: 20110831
  Serious: Yes (Hospitalization)
  Sender: FDA-Public Use
  Company Number: US-BIOGENIDEC-2010BI034659

PATIENT
  Age: 41 Year
  Sex: Female
  Weight: 77 kg

DRUGS (1)
  1. TYSABRI [Suspect]
     Indication: MULTIPLE SCLEROSIS
     Route: 042
     Dates: start: 20100128

REACTIONS (8)
  - COLITIS EROSIVE [None]
  - ANAEMIA [None]
  - PAIN IN EXTREMITY [None]
  - FEELING ABNORMAL [None]
  - NAUSEA [None]
  - DIVERTICULITIS [None]
  - GASTRITIS [None]
  - DIARRHOEA [None]
